FAERS Safety Report 9995504 (Version 1)
Quarter: 2014Q1

REPORT INFORMATION
  Report Type: Spontaneous
  Country: US (occurrence: US)
  Receive Date: 20140311
  Receipt Date: 20140311
  Transmission Date: 20141002
  Serious: Yes (Other)
  Sender: FDA-Public Use
  Company Number: US-AMGEN-USASP2014015865

PATIENT
  Age: 88 Year
  Sex: Female

DRUGS (2)
  1. PROLIA [Suspect]
     Indication: OSTEOPOROSIS POSTMENOPAUSAL
     Dosage: 60 MG, Q6MO
     Route: 065
  2. LEVOTHYROXINE [Concomitant]
     Route: 065

REACTIONS (4)
  - Tooth abscess [Unknown]
  - Primary sequestrum [Unknown]
  - Tongue injury [Unknown]
  - Pharyngeal injury [Unknown]
